FAERS Safety Report 22540357 (Version 1)
Quarter: 2023Q2

REPORT INFORMATION
  Report Type: Spontaneous
  Country: US (occurrence: None)
  Receive Date: 20230607
  Receipt Date: 20230607
  Transmission Date: 20230721
  Serious: No
  Sender: FDA-Public Use
  Company Number: None

PATIENT
  Sex: Female

DRUGS (31)
  1. TAFINLAR [Suspect]
     Active Substance: DABRAFENIB MESYLATE
     Indication: Histiocytosis
     Dosage: FREQUENCY : TWICE A DAY;?
     Route: 048
  2. DIETARY SUPPLEMENT [Concomitant]
     Active Substance: DIETARY SUPPLEMENT
  3. LORATADINE [Concomitant]
     Active Substance: LORATADINE
  4. LOPERAMIDE [Concomitant]
     Active Substance: LOPERAMIDE
  5. HYDRALAZINE [Concomitant]
     Active Substance: HYDRALAZINE HYDROCHLORIDE
  6. FLONASE [Concomitant]
  7. ESCITALOPRAM [Concomitant]
     Active Substance: ESCITALOPRAM OXALATE
  8. CARVEDILOL [Concomitant]
     Active Substance: CARVEDILOL
  9. AMLODIPINE [Concomitant]
     Active Substance: AMLODIPINE BESYLATE
  10. ALBUTEROL [Concomitant]
  11. NYSTATIN [Concomitant]
     Active Substance: NYSTATIN
  12. OMEPRAZOLE [Concomitant]
  13. ONDANSETRON [Concomitant]
     Active Substance: ONDANSETRON
  14. FERROUS SULFATE [Concomitant]
  15. LEVOTHYROXINE [Concomitant]
     Active Substance: LEVOTHYROXINE
  16. CYANOCOBALAMIN [Concomitant]
     Active Substance: CYANOCOBALAMIN
  17. POTASSIUM CHLORIDE [Concomitant]
  18. SCOPOLAMINE [Concomitant]
     Active Substance: SCOPOLAMINE
  19. OXYCODONE [Concomitant]
     Active Substance: OXYCODONE
  20. GUIFENESIN [Concomitant]
  21. MECLIZINE [Concomitant]
     Active Substance: MECLIZINE HYDROCHLORIDE
  22. KETOCONAZOLE [Concomitant]
     Active Substance: KETOCONAZOLE
  23. MOMETASONE [Concomitant]
     Active Substance: MOMETASONE
  24. DOXYCYCLINE [Concomitant]
     Active Substance: DOXYCYCLINE
  25. MOUTHWASH [Concomitant]
     Active Substance: CETYLPYRIDINIUM CHLORIDE
  26. DICYCLOMINE [Concomitant]
     Active Substance: DICYCLOMINE HYDROCHLORIDE
  27. TRANEXAMIC ACID [Concomitant]
  28. TIROSINT [Concomitant]
     Active Substance: LEVOTHYROXINE SODIUM
  29. PROVERA [Concomitant]
     Active Substance: MEDROXYPROGESTERONE ACETATE
  30. GABAPENTIN [Concomitant]
     Active Substance: GABAPENTIN
  31. WEGOVY [Concomitant]
     Active Substance: SEMAGLUTIDE

REACTIONS (1)
  - Endocrine ophthalmopathy [None]
